FAERS Safety Report 10622566 (Version 2)
Quarter: 2015Q1

REPORT INFORMATION
  Report Type: Spontaneous
  Country: IT (occurrence: IT)
  Receive Date: 20141203
  Receipt Date: 20150107
  Transmission Date: 20150720
  Serious: Yes (Hospitalization)
  Sender: FDA-Public Use
  Company Number: IT-PFIZER INC-2014329085

PATIENT
  Age: 81 Year
  Sex: Female
  Weight: 65 kg

DRUGS (10)
  1. LANOXIN [Concomitant]
     Active Substance: DIGOXIN
     Dosage: UNK
  2. SONIREM [Suspect]
     Active Substance: ZOLPIDEM TARTRATE
     Indication: PERSECUTORY DELUSION
     Dosage: UNK
     Route: 048
  3. TAVOR [Suspect]
     Active Substance: LORAZEPAM
     Indication: PERSECUTORY DELUSION
     Dosage: 1.2 MG, DAILY
  4. TRIATEC [Concomitant]
     Active Substance: RAMIPRIL
     Dosage: UNK
  5. ATORVASTATIN [Concomitant]
     Active Substance: ATORVASTATIN
     Dosage: UNK
  6. COUMADIN [Concomitant]
     Active Substance: WARFARIN SODIUM
     Dosage: UNK
  7. URSODEOXYCHOLIC ACID [Concomitant]
     Active Substance: URSODIOL
     Dosage: UNK
  8. PANTORC [Concomitant]
     Active Substance: PANTOPRAZOLE SODIUM
     Dosage: UNK
  9. XANAX [Suspect]
     Active Substance: ALPRAZOLAM
     Indication: PERSECUTORY DELUSION
     Dosage: 1.5 MG, DAILY
     Route: 048
  10. TRITTICO [Suspect]
     Active Substance: TRAZODONE HYDROCHLORIDE
     Indication: DEMENTIA
     Dosage: 30 GTT, DAILY
     Route: 048

REACTIONS (3)
  - Decreased appetite [Recovering/Resolving]
  - Dysstasia [Recovering/Resolving]
  - Cognitive disorder [Recovering/Resolving]

NARRATIVE: CASE EVENT DATE: 20140731
